FAERS Safety Report 8152530-7 (Version None)
Quarter: 2012Q1

REPORT INFORMATION
  Report Type: 
  Country: None (occurrence: None)
  Receive Date: 20120221
  Receipt Date: 20120216
  Transmission Date: 20120608
  Serious: No
  Sender: FDA-Public Use
  Company Number: US-PFIZER INC-2011316659

PATIENT
  Sex: Male
  Weight: 95.238 kg

DRUGS (3)
  1. LISINOPRIL [Suspect]
     Dosage: STRENGTH 40MG, UNK
  2. CHANTIX [Suspect]
     Indication: SMOKING CESSATION THERAPY
     Dosage: 0.5 MG, DAILY
     Route: 048
     Dates: start: 20111001, end: 20111001
  3. ATENOLOL [Concomitant]
     Indication: HYPERTENSION
     Dosage: UNK

REACTIONS (4)
  - PERSONALITY CHANGE [None]
  - ABNORMAL BEHAVIOUR [None]
  - THINKING ABNORMAL [None]
  - DISTURBANCE IN ATTENTION [None]
